FAERS Safety Report 12546341 (Version 1)
Quarter: 2016Q3

REPORT INFORMATION
  Report Type: Report from Study
  Country: CO (occurrence: CO)
  Receive Date: 20160711
  Receipt Date: 20160711
  Transmission Date: 20161109
  Serious: Yes (Life-Threatening)
  Sender: FDA-Public Use
  Company Number: PHHY2016CO053054

PATIENT
  Age: 78 Year
  Sex: Female
  Weight: 60 kg

DRUGS (2)
  1. AFINITOR [Suspect]
     Active Substance: EVEROLIMUS
     Dosage: 10 MG, QD
     Route: 048
  2. AFINITOR [Suspect]
     Active Substance: EVEROLIMUS
     Indication: NEUROENDOCRINE TUMOUR
     Dosage: 10 MG, QD
     Route: 048
     Dates: start: 20160412

REACTIONS (12)
  - Oropharyngeal pain [Unknown]
  - Mouth ulceration [Recovering/Resolving]
  - Bone pain [Unknown]
  - Pyrexia [Unknown]
  - Headache [Unknown]
  - Inflammation [Unknown]
  - Pain in extremity [Unknown]
  - Apparent death [Unknown]
  - Abasia [Unknown]
  - Vomiting [Unknown]
  - Abdominal pain [Unknown]
  - Diarrhoea [Unknown]

NARRATIVE: CASE EVENT DATE: 20160417
